FAERS Safety Report 25341920 (Version 1)
Quarter: 2025Q2

REPORT INFORMATION
  Report Type: Spontaneous
  Country: US (occurrence: US)
  Receive Date: 20250521
  Receipt Date: 20250521
  Transmission Date: 20250717
  Serious: Yes (Hospitalization, Other)
  Sender: BRISTOL-MYERS SQUIBB COMPANY
  Company Number: US-BRISTOL-MYERS SQUIBB COMPANY-2025-068567

PATIENT
  Age: 60 Year
  Sex: Male

DRUGS (5)
  1. POMALYST [Suspect]
     Active Substance: POMALIDOMIDE
     Indication: Product used for unknown indication
     Dosage: DAYS
  2. DEXAMETHASONE [Suspect]
     Active Substance: DEXAMETHASONE
     Indication: Product used for unknown indication
     Route: 042
  3. CARFILZOMIB [Suspect]
     Active Substance: CARFILZOMIB
     Indication: Product used for unknown indication
     Dates: start: 20250123
  4. CARFILZOMIB [Suspect]
     Active Substance: CARFILZOMIB
     Dates: start: 20250220
  5. CARFILZOMIB [Suspect]
     Active Substance: CARFILZOMIB
     Dates: start: 20250116

REACTIONS (4)
  - Pneumonia [Unknown]
  - Hypoxia [Unknown]
  - Off label use [Unknown]
  - Acute respiratory failure [Unknown]

NARRATIVE: CASE EVENT DATE: 20250116
